FAERS Safety Report 19869331 (Version 1)
Quarter: 2021Q3

REPORT INFORMATION
  Report Type: Report from Study
  Country: BE (occurrence: BE)
  Receive Date: 20210922
  Receipt Date: 20210922
  Transmission Date: 20211014
  Serious: Yes (Hospitalization, Other)
  Sender: FDA-Public Use
  Company Number: BE-PFIZER INC-202101180054

PATIENT
  Age: 73 Year
  Sex: Female
  Weight: 95 kg

DRUGS (7)
  1. CIPROXINE [CIPROFLOXACIN] [Concomitant]
     Indication: URINARY TRACT INFECTION
     Route: 048
     Dates: start: 202101, end: 202101
  2. VELCADE [Suspect]
     Active Substance: BORTEZOMIB
     Indication: PLASMA CELL MYELOMA
     Dosage: 2.53 MG, WEEKLY
     Route: 042
     Dates: start: 20210113, end: 20210113
  3. RIVAROXABAN [Concomitant]
     Active Substance: RIVAROXABAN
     Dosage: UNK
     Dates: start: 202102
  4. DOXORUBICIN HCL [Suspect]
     Active Substance: DOXORUBICIN HYDROCHLORIDE
     Indication: PRODUCT USED FOR UNKNOWN INDICATION
     Dosage: 60 MG, WEEKLY
     Route: 042
     Dates: start: 20210113, end: 20210113
  5. RIVAROXABAN [Concomitant]
     Active Substance: RIVAROXABAN
     Indication: PULMONARY EMBOLISM
     Dosage: 20 CAPSULES DAILY
     Route: 048
     Dates: start: 20200208, end: 20210127
  6. NADROPARIN [Concomitant]
     Active Substance: NADROPARIN
     Indication: PULMONARY EMBOLISM
     Route: 058
     Dates: start: 20210128, end: 202102
  7. TAZOBACTAM [Concomitant]
     Active Substance: TAZOBACTAM
     Indication: TUMOUR ASSOCIATED FEVER
     Route: 065
     Dates: start: 20210127, end: 202102

REACTIONS (2)
  - Neutropenia [Recovered/Resolved]
  - Tumour associated fever [Recovered/Resolved]

NARRATIVE: CASE EVENT DATE: 20210126
